FAERS Safety Report 23391717 (Version 1)
Quarter: 2024Q1

REPORT INFORMATION
  Report Type: Spontaneous
  Country: US (occurrence: None)
  Receive Date: 20240110
  Receipt Date: 20240110
  Transmission Date: 20240410
  Serious: Yes (Other)
  Sender: FDA-Public Use
  Company Number: None

PATIENT
  Age: 65 Year
  Sex: Female

DRUGS (1)
  1. ALENDRONATE SODIUM [Suspect]
     Active Substance: ALENDRONATE SODIUM
     Indication: Osteoporosis
     Dosage: ONCE A WEEK ORAL?
     Route: 048
     Dates: start: 20240107

REACTIONS (2)
  - Influenza like illness [None]
  - Pruritus [None]

NARRATIVE: CASE EVENT DATE: 20240107
